FAERS Safety Report 11889805 (Version 3)
Quarter: 2016Q1

REPORT INFORMATION
  Report Type: Spontaneous
  Country: US (occurrence: US)
  Receive Date: 20151221
  Receipt Date: 20160210
  Transmission Date: 20160526
  Serious: Yes (Hospitalization, Other)
  Sender: FDA-Public Use
  Company Number: US-GLAXOSMITHKLINE-US2015177232

PATIENT
  Age: 63 Year
  Sex: Male

DRUGS (17)
  1. GABAPENTIN. [Concomitant]
     Active Substance: GABAPENTIN
  2. PREDNISONE. [Concomitant]
     Active Substance: PREDNISONE
  3. TOUJEO [Concomitant]
     Active Substance: INSULIN GLARGINE
  4. OMEPRAZOLE. [Concomitant]
     Active Substance: OMEPRAZOLE
  5. HYDROCODONE [Concomitant]
     Active Substance: HYDROCODONE
  6. ADVAIR DISKUS [Suspect]
     Active Substance: FLUTICASONE PROPIONATE\SALMETEROL XINAFOATE
     Indication: CHRONIC OBSTRUCTIVE PULMONARY DISEASE
     Dosage: 1 PUFF(S), BID
     Dates: start: 201507
  7. CARVEDILOL. [Concomitant]
     Active Substance: CARVEDILOL
  8. RAMIPRIL. [Concomitant]
     Active Substance: RAMIPRIL
  9. DIGOXIN. [Concomitant]
     Active Substance: DIGOXIN
  10. EPLERENONE. [Concomitant]
     Active Substance: EPLERENONE
  11. FUROSEMIDE. [Concomitant]
     Active Substance: FUROSEMIDE
  12. ATORVASTATIN [Concomitant]
     Active Substance: ATORVASTATIN
  13. BYDUREON [Concomitant]
     Active Substance: EXENATIDE
  14. CLOPIDOGREL SULFATE [Concomitant]
     Active Substance: CLOPIDOGREL BISULFATE
  15. MUCINEX [Concomitant]
     Active Substance: GUAIFENESIN
  16. SINGULAIR [Concomitant]
     Active Substance: MONTELUKAST SODIUM
  17. SPIRIVA [Concomitant]
     Active Substance: TIOTROPIUM BROMIDE MONOHYDRATE

REACTIONS (2)
  - Lung neoplasm malignant [Recovering/Resolving]
  - Pneumonia [Recovering/Resolving]

NARRATIVE: CASE EVENT DATE: 20151101
